FAERS Safety Report 8276707-5 (Version None)
Quarter: 2012Q2

REPORT INFORMATION
  Report Type: 
  Country: None (occurrence: None)
  Receive Date: 20120412
  Receipt Date: 20120412
  Transmission Date: 20120825
  Serious: Yes (Other)
  Sender: FDA-Public Use
  Company Number: None

PATIENT
  Age: 81 Year
  Sex: Male
  Weight: 100.24 kg

DRUGS (2)
  1. CARDIZEM [Concomitant]
     Indication: HYPERTENSION
     Dosage: 240 MGM X 1
     Route: 048
     Dates: start: 20120328, end: 20120411
  2. METOPROLOL TARTRATE [Suspect]
     Indication: HYPERTENSION
     Dosage: 25 MGM X 1
     Route: 048
     Dates: start: 20120101, end: 20120301

REACTIONS (7)
  - ERECTILE DYSFUNCTION [None]
  - DEPRESSION [None]
  - PAIN [None]
  - CHEST PAIN [None]
  - SOMNOLENCE [None]
  - INSOMNIA [None]
  - FATIGUE [None]
